FAERS Safety Report 12644817 (Version 3)
Quarter: 2016Q4

REPORT INFORMATION
  Report Type: Spontaneous
  Country: US (occurrence: US)
  Receive Date: 20160811
  Receipt Date: 20161014
  Transmission Date: 20170207
  Serious: Yes (Other)
  Sender: FDA-Public Use
  Company Number: US-PFIZER INC-2016378204

PATIENT
  Age: 82 Year
  Sex: Female
  Weight: 57.6 kg

DRUGS (1)
  1. IBRANCE [Suspect]
     Active Substance: PALBOCICLIB
     Indication: BREAST CANCER METASTATIC
     Dosage: 100 MG, DAILY (FOR 21 DAYS)
     Route: 048

REACTIONS (11)
  - Fatigue [Recovering/Resolving]
  - Weight decreased [Recovering/Resolving]
  - Pain in extremity [Unknown]
  - Joint swelling [Recovered/Resolved]
  - Alopecia [Recovering/Resolving]
  - Chest pain [Unknown]
  - Arthralgia [Recovering/Resolving]
  - Iron deficiency [Unknown]
  - Clostridium difficile infection [Recovering/Resolving]
  - Product label issue [Unknown]
  - Back pain [Unknown]

NARRATIVE: CASE EVENT DATE: 20161003
